FAERS Safety Report 15094066 (Version 1)
Quarter: 2018Q2

REPORT INFORMATION
  Report Type: Spontaneous
  Country: US (occurrence: US)
  Receive Date: 20180630
  Receipt Date: 20180630
  Transmission Date: 20180711
  Serious: No
  Sender: FDA-Public Use
  Company Number: US-IPSEN BIOPHARMACEUTICALS, INC.-2018-09226

PATIENT
  Sex: Female

DRUGS (4)
  1. INCRELEX [Suspect]
     Active Substance: MECASERMIN
     Indication: BODY HEIGHT BELOW NORMAL
     Route: 058
     Dates: start: 20160605
  2. ZYRTEC CHILD SYP [Concomitant]
  3. SINGULAIR CHEW [Concomitant]
  4. INCRELEX [Suspect]
     Active Substance: MECASERMIN
     Indication: OFF LABEL USE

REACTIONS (2)
  - Malaise [Unknown]
  - Off label use [Unknown]

NARRATIVE: CASE EVENT DATE: 2018
